FAERS Safety Report 4402289-1 (Version None)
Quarter: 2004Q3

REPORT INFORMATION
  Report Type: 
  Country: None (occurrence: None)
  Receive Date: 20040714
  Receipt Date: 20040701
  Transmission Date: 20050211
  Serious: Yes (Hospitalization)
  Sender: FDA-Public Use
  Company Number: 174646

PATIENT
  Age: 40 Year
  Sex: Female
  Weight: 97.5234 kg

DRUGS (1)
  1. AVONEX [Suspect]
     Indication: MULTIPLE SCLEROSIS
     Dosage: 30 MCG QW IM
     Route: 030
     Dates: start: 19970101, end: 20000101

REACTIONS (8)
  - BONE FORMATION INCREASED [None]
  - DRUG HYPERSENSITIVITY [None]
  - EXOSTOSIS [None]
  - INCISION SITE COMPLICATION [None]
  - OROPHARYNGEAL SWELLING [None]
  - PALPITATIONS [None]
  - POSTOPERATIVE INFECTION [None]
  - URINARY TRACT INFECTION [None]
